FAERS Safety Report 8956706 (Version 1)
Quarter: 2012Q4

REPORT INFORMATION
  Report Type: Spontaneous
  Country: SG (occurrence: None)
  Receive Date: 20121128
  Receipt Date: 20121128
  Transmission Date: 20130627
  Serious: Yes (Hospitalization)
  Sender: FDA-Public Use
  Company Number: 2012ST000133

PATIENT
  Age: 12 Year
  Sex: Male

DRUGS (3)
  1. OMEPRAZOLE (OMEPRAZOLE) [Suspect]
     Indication: HELICOBACTER INFECTION
     Route: 048
  2. AMOXICILLIN [Concomitant]
  3. CLARITHROMYCIN [Concomitant]

REACTIONS (2)
  - Myositis [None]
  - Blood creatine phosphokinase increased [None]
